FAERS Safety Report 4759653-0 (Version None)
Quarter: 2005Q3

REPORT INFORMATION
  Report Type: 
  Country: None (occurrence: None)
  Receive Date: 20050901
  Receipt Date: 20050511
  Transmission Date: 20060218
  Serious: Yes (Hospitalization, Other)
  Sender: FDA-Public Use
  Company Number: US-MERCK-0505USA01661

PATIENT
  Age: 60 Year
  Sex: Female
  Weight: 41 kg

DRUGS (2)
  1. VIOXX [Suspect]
     Indication: OSTEOARTHRITIS
     Route: 048
     Dates: start: 20001101, end: 20021001
  2. VIOXX [Suspect]
     Route: 048
     Dates: start: 20021101, end: 20041001

REACTIONS (17)
  - ANGINA PECTORIS [None]
  - ARRHYTHMIA [None]
  - BREAST CANCER [None]
  - CARDIAC DISORDER [None]
  - CARDIOVASCULAR DISORDER [None]
  - CEREBROVASCULAR ACCIDENT [None]
  - DEPRESSION [None]
  - DRUG HYPERSENSITIVITY [None]
  - DYSPHAGIA [None]
  - DYSPNOEA [None]
  - EYE HAEMORRHAGE [None]
  - INJURY [None]
  - METASTASES TO LYMPH NODES [None]
  - ORGAN FAILURE [None]
  - PAIN [None]
  - THROMBOSIS [None]
  - VAGINAL HAEMORRHAGE [None]
